FAERS Safety Report 4377007-6 (Version None)
Quarter: 2004Q2

REPORT INFORMATION
  Report Type: 
  Country: None (occurrence: None)
  Receive Date: 20040614
  Receipt Date: 20040604
  Transmission Date: 20050107
  Serious: Yes (Other)
  Sender: FDA-Public Use
  Company Number: GB-BRISTOL-MYERS SQUIBB COMPANY-12604914

PATIENT
  Age: 39 Year
  Sex: Male

DRUGS (1)
  1. PRAVASTATIN SODIUM [Suspect]
     Dates: start: 20011101

REACTIONS (2)
  - DIZZINESS [None]
  - PSORIASIS [None]
